FAERS Safety Report 9580967 (Version 1)
Quarter: 2013Q3

REPORT INFORMATION
  Report Type: Spontaneous
  Country: US (occurrence: None)
  Receive Date: 20130916
  Receipt Date: 20130916
  Transmission Date: 20140515
  Serious: Yes (Hospitalization)
  Sender: FDA-Public Use
  Company Number: JPI-P-026249

PATIENT
  Age: 51 Year
  Sex: Female
  Weight: 69.85 kg

DRUGS (4)
  1. XYREM [Suspect]
     Indication: CATAPLEXY
     Route: 048
     Dates: start: 20061229
  2. ALBUTEROL SULFATE [Concomitant]
  3. ATENOLOL [Concomitant]
  4. OMEPRAZOLE [Concomitant]

REACTIONS (2)
  - Pneumonia [None]
  - Influenza like illness [None]
